FAERS Safety Report 20502232 (Version 1)
Quarter: 2022Q1

REPORT INFORMATION
  Report Type: Report from Study
  Country: US (occurrence: US)
  Receive Date: 20220222
  Receipt Date: 20220222
  Transmission Date: 20220423
  Serious: Yes (Hospitalization, Other)
  Sender: FDA-Public Use
  Company Number: US-SHIRE-US201936179

PATIENT
  Sex: Female

DRUGS (3)
  1. HUMAN IMMUNOGLOBULIN G [Suspect]
     Active Substance: HUMAN IMMUNOGLOBULIN G
     Indication: Hypogammaglobulinaemia
     Dosage: 15 GRAM, 1/WEEK
     Route: 058
  2. HUMAN IMMUNOGLOBULIN G [Suspect]
     Active Substance: HUMAN IMMUNOGLOBULIN G
     Dosage: 12 GRAM, 1/WEEK
     Route: 058
  3. CUVITRU [Suspect]
     Active Substance: HUMAN IMMUNOGLOBULIN G
     Indication: Hypogammaglobulinaemia
     Dosage: UNK
     Route: 065

REACTIONS (16)
  - Gallbladder disorder [Unknown]
  - Meningitis aseptic [Unknown]
  - Nephrolithiasis [Unknown]
  - Intervertebral disc protrusion [Unknown]
  - Lordosis [Unknown]
  - Infection [Unknown]
  - Road traffic accident [Unknown]
  - Muscle spasms [Unknown]
  - Headache [Unknown]
  - Migraine [Unknown]
  - Renal disorder [Unknown]
  - Contusion [Unknown]
  - Fall [Unknown]
  - Wrist fracture [Unknown]
  - Foot fracture [Unknown]
  - Unevaluable event [Unknown]
